FAERS Safety Report 24878359 (Version 1)
Quarter: 2025Q1

REPORT INFORMATION
  Report Type: Spontaneous
  Country: US (occurrence: None)
  Receive Date: 20250122
  Receipt Date: 20250122
  Transmission Date: 20250409
  Serious: Yes (Hospitalization)
  Sender: FDA-CTU
  Company Number: None

PATIENT
  Age: 72 Year
  Sex: Female

DRUGS (2)
  1. CEPHALEXIN [Suspect]
     Active Substance: CEPHALEXIN
     Indication: Sinusitis
     Dosage: 2 CAPSULES EVERY 12 HOURS ORAL
     Route: 048
  2. PREDNISONE [Suspect]
     Active Substance: PREDNISONE

REACTIONS (5)
  - Cellulitis [None]
  - Hypersensitivity [None]
  - Illness [None]
  - Rash pruritic [None]
  - Dermatitis [None]

NARRATIVE: CASE EVENT DATE: 20240909
